FAERS Safety Report 4946646-3 (Version None)
Quarter: 2006Q1

REPORT INFORMATION
  Report Type: 
  Country: None (occurrence: None)
  Receive Date: 20060201
  Receipt Date: 20051215
  Transmission Date: 20060701
  Serious: No
  Sender: FDA-Public Use
  Company Number: 2005PV005905

PATIENT
  Age: 31 Year
  Sex: Male

DRUGS (6)
  1. BYETTA [Suspect]
     Dosage: 5 MCG; BID; SC
     Route: 058
     Dates: start: 20051101
  2. TRICOR [Concomitant]
  3. DEPAKOTE [Concomitant]
  4. AMBIEN [Concomitant]
  5. CLONAZEPAM [Concomitant]
  6. PRILOSEC [Concomitant]

REACTIONS (5)
  - DECREASED APPETITE [None]
  - DRUG INEFFECTIVE [None]
  - DYSGEUSIA [None]
  - NIGHTMARE [None]
  - WEIGHT DECREASED [None]
